FAERS Safety Report 15848958 (Version 1)
Quarter: 2019Q1

REPORT INFORMATION
  Report Type: Spontaneous
  Country: ES (occurrence: ES)
  Receive Date: 20190121
  Receipt Date: 20190121
  Transmission Date: 20190417
  Serious: Yes (Other)
  Sender: FDA-Public Use
  Company Number: ES-PFIZER INC-2019021187

PATIENT
  Age: 64 Year
  Sex: Male

DRUGS (3)
  1. METHOTREXATE SODIUM. [Suspect]
     Active Substance: METHOTREXATE SODIUM
     Dosage: UNK (AS NEEDED)
     Route: 042
     Dates: start: 20180213, end: 20180214
  2. CYTARABINE. [Suspect]
     Active Substance: CYTARABINE
     Dosage: UNK (AS NEEDED)
     Route: 042
     Dates: start: 20180214, end: 20180215
  3. RITUXIMAB. [Concomitant]
     Active Substance: RITUXIMAB
     Dosage: UNK (AS NEEDED ON: 12 AND 17/02/2018)
     Route: 042
     Dates: start: 20180212, end: 20180217

REACTIONS (2)
  - Hepatitis [Recovered/Resolved]
  - Acute kidney injury [Recovered/Resolved]

NARRATIVE: CASE EVENT DATE: 20180214
